FAERS Safety Report 24997730 (Version 1)
Quarter: 2025Q1

REPORT INFORMATION
  Report Type: Spontaneous
  Country: CA (occurrence: CA)
  Receive Date: 20250222
  Receipt Date: 20250222
  Transmission Date: 20250409
  Serious: Yes (Life-Threatening, Hospitalization)
  Sender: CELLTRION
  Company Number: CA-CELLTRION INC.-2025CA005016

PATIENT

DRUGS (1)
  1. RITUXIMAB [Suspect]
     Active Substance: RITUXIMAB
     Indication: Cold type haemolytic anaemia
     Route: 042

REACTIONS (2)
  - Haemoglobin decreased [Unknown]
  - Off label use [Unknown]
